FAERS Safety Report 18215543 (Version 1)
Quarter: 2020Q3

REPORT INFORMATION
  Report Type: Spontaneous
  Country: FR (occurrence: FR)
  Receive Date: 20200901
  Receipt Date: 20200901
  Transmission Date: 20201103
  Serious: Yes (Hospitalization)
  Sender: FDA-Public Use
  Company Number: FR-SUN PHARMACEUTICAL INDUSTRIES LTD-2020RR-259277

PATIENT
  Age: 72 Year
  Sex: Male
  Weight: 55.8 kg

DRUGS (8)
  1. TOVIAZ [Concomitant]
     Active Substance: FESOTERODINE FUMARATE
     Indication: URINARY INCONTINENCE
     Dosage: 1 DOSAGE FORM, DAILY
     Route: 048
     Dates: start: 202002
  2. LAMPRENE [Concomitant]
     Active Substance: CLOFAZIMINE
     Indication: PNEUMONIA
     Dosage: 100 MILLIGRAM, DAILY
     Route: 048
     Dates: start: 20200518, end: 20200611
  3. SEROPLEX 10 MG, COMPRIME PELLICULE SECABLE [Concomitant]
     Active Substance: ESCITALOPRAM OXALATE
     Indication: ANXIETY
     Dosage: 1 DOSAGE FORM, DAILY
     Route: 048
  4. CLARITHROMYCINE [Suspect]
     Active Substance: CLARITHROMYCIN
     Indication: PNEUMONIA
     Dosage: 500 MILLIGRAM, DAILY
     Route: 048
     Dates: start: 20200430, end: 20200603
  5. CILASTATINE SODIQUE [Concomitant]
     Active Substance: CILASTATIN SODIUM
     Indication: PNEUMONIA
     Dosage: INCONNUE ()
     Route: 042
     Dates: start: 20200430, end: 20200518
  6. ULTIBRO BREEZHALER [Concomitant]
     Active Substance: GLYCOPYRRONIUM\INDACATEROL
     Indication: CHRONIC OBSTRUCTIVE PULMONARY DISEASE
     Dosage: 1 DOSAGE FORM, DAILY
     Route: 055
     Dates: start: 201911
  7. AMIKACINE [Suspect]
     Active Substance: AMIKACIN
     Indication: PNEUMONIA
     Dosage: INCONNUE ()
     Route: 042
     Dates: start: 20200430, end: 20200518
  8. IMIPENEM ANHYDRE [Concomitant]
     Active Substance: IMIPENEM
     Indication: PNEUMONIA
     Dosage: INCONNUE ()
     Route: 042
     Dates: start: 20200430, end: 20200518

REACTIONS (1)
  - Deafness bilateral [Recovered/Resolved]

NARRATIVE: CASE EVENT DATE: 20200519
